FAERS Safety Report 24063901 (Version 3)
Quarter: 2025Q2

REPORT INFORMATION
  Report Type: Report from Study
  Country: CA (occurrence: CA)
  Receive Date: 20240709
  Receipt Date: 20250623
  Transmission Date: 20250716
  Serious: Yes (Other)
  Sender: TAKEDA
  Company Number: CA-TAKEDA-2024TUS067076

PATIENT
  Sex: Male

DRUGS (5)
  1. VEDOLIZUMAB [Suspect]
     Active Substance: VEDOLIZUMAB
     Indication: Colitis ulcerative
  2. VEDOLIZUMAB [Suspect]
     Active Substance: VEDOLIZUMAB
     Indication: Colitis ulcerative
     Dosage: 108 MILLIGRAM, Q2WEEKS
     Dates: start: 20230125
  3. Cortiment [Concomitant]
  4. ASACOL [Concomitant]
     Active Substance: MESALAMINE
  5. IMURAN [Concomitant]
     Active Substance: AZATHIOPRINE
     Dosage: 300 MILLIGRAM, QD

REACTIONS (1)
  - Colitis ulcerative [Unknown]
